FAERS Safety Report 8974194 (Version 1)
Quarter: 2012Q4

REPORT INFORMATION
  Report Type: Spontaneous
  Country: FR (occurrence: None)
  Receive Date: 20121211
  Receipt Date: 20121211
  Transmission Date: 20130627
  Serious: Yes (Hospitalization)
  Sender: FDA-Public Use
  Company Number: DSA_61258_2012

PATIENT
  Age: 64 Year
  Sex: Female

DRUGS (17)
  1. MONO-TILDIEM [Suspect]
     Indication: PRODUCT USED FOR UNKNOWN INDICATION
     Route: 048
     Dates: end: 201207
  2. BIPRETERAX [Suspect]
     Indication: PRODUCT USED FOR UNKNOWN INDICATION
     Route: 048
     Dates: start: 20120709, end: 201207
  3. DISCOTRINE [Concomitant]
  4. KARDEGIC [Concomitant]
  5. LOXEN [Concomitant]
  6. HYPERIUM [Concomitant]
  7. PARIET [Concomitant]
  8. GLUCOPHAGE [Concomitant]
  9. ZOCOR [Concomitant]
  10. SERETIDE DISCUS [Concomitant]
  11. NOVORAPID [Concomitant]
  12. LEVEMIR FLEXPEN [Concomitant]
  13. AZOPT [Concomitant]
  14. XALATAN [Concomitant]
  15. ATARAX /00058401/ [Concomitant]
  16. THERALENE [Concomitant]
  17. SERESTA [Concomitant]

REACTIONS (3)
  - Hyperkalaemia [None]
  - Bradycardia [None]
  - Syncope [None]
